FAERS Safety Report 8424277-0 (Version None)
Quarter: 2012Q2

REPORT INFORMATION
  Report Type: 
  Country: None (occurrence: None)
  Receive Date: 20120608
  Receipt Date: 20111209
  Transmission Date: 20120825
  Serious: No
  Sender: FDA-Public Use
  Company Number: US-ASTRAZENECA-2011SE71218

PATIENT
  Age: 72 Year
  Sex: Female
  Weight: 58.1 kg

DRUGS (5)
  1. THYROID PILL [Concomitant]
  2. XOTNEX HAF [Concomitant]
  3. PULMICORT FLEXHALER [Suspect]
     Indication: ASTHMA
     Dosage: 180 MCG TWO PUFFS TWO TIMES A DAY
     Route: 055
     Dates: start: 20050101
  4. LIPITOR [Concomitant]
     Indication: BLOOD CHOLESTEROL ABNORMAL
  5. PULMICORT FLEXHALER [Suspect]
     Dosage: 180 MCG ONE PUFF DAILY
     Route: 055

REACTIONS (3)
  - MALAISE [None]
  - DYSPNOEA [None]
  - OFF LABEL USE [None]
